FAERS Safety Report 4973686-0 (Version None)
Quarter: 2006Q2

REPORT INFORMATION
  Report Type: 
  Country: None (occurrence: None)
  Receive Date: 20060414
  Receipt Date: 20051114
  Transmission Date: 20061013
  Serious: Yes (Hospitalization, Disabling, Other)
  Sender: FDA-Public Use
  Company Number: US-MERCK-0511USA02461

PATIENT
  Age: 50 Year
  Sex: Female
  Weight: 50 kg

DRUGS (2)
  1. VIOXX [Suspect]
     Indication: OSTEOARTHRITIS
     Route: 048
     Dates: start: 20010214
  2. VIOXX [Suspect]
     Indication: RHEUMATOID ARTHRITIS
     Route: 048
     Dates: start: 20010214

REACTIONS (10)
  - ANGINA PECTORIS [None]
  - ASTHENIA [None]
  - BACK PAIN [None]
  - CARDIAC DISORDER [None]
  - CAROTID ARTERY DISEASE [None]
  - LUNG INJURY [None]
  - MYOCARDIAL INFARCTION [None]
  - SPEECH DISORDER [None]
  - THROMBOSIS [None]
  - TRANSIENT ISCHAEMIC ATTACK [None]
